APPROVED DRUG PRODUCT: SILDENAFIL CITRATE
Active Ingredient: SILDENAFIL CITRATE
Strength: EQ 25MG BASE
Dosage Form/Route: TABLET;ORAL
Application: A212051 | Product #001 | TE Code: AB
Applicant: CHARTWELL RX SCIENCES LLC
Approved: Mar 22, 2019 | RLD: No | RS: No | Type: RX